FAERS Safety Report 10932760 (Version 1)
Quarter: 2015Q1

REPORT INFORMATION
  Report Type: Spontaneous
  Country: US (occurrence: None)
  Receive Date: 20150318
  Receipt Date: 20150318
  Transmission Date: 20150721
  Serious: No
  Sender: FDA-Public Use
  Company Number: 1210513-2015-00099

PATIENT
  Sex: Female

DRUGS (1)
  1. DR. SHEFFIELD CLEAR ZIT (BENZOYL PEROXIDE 10%) (SHEFFIELD PHARMACEUTICALS) [Suspect]
     Active Substance: BENZOYL PEROXIDE
     Indication: ACNE
     Dosage: TOPICAL 060
     Route: 061

REACTIONS (1)
  - Skin depigmentation [None]

NARRATIVE: CASE EVENT DATE: 20111007
